FAERS Safety Report 9639297 (Version 2)
Quarter: 2013Q4

REPORT INFORMATION
  Report Type: Report from Study
  Country: US (occurrence: US)
  Receive Date: 20131022
  Receipt Date: 20131030
  Transmission Date: 20140711
  Serious: Yes (Other)
  Sender: FDA-Public Use
  Company Number: US-BAXTER-2013BAX041411

PATIENT
  Sex: Female
  Weight: 70.3 kg

DRUGS (3)
  1. ARALAST NP [Suspect]
     Indication: ALPHA-1 ANTI-TRYPSIN DEFICIENCY
     Dosage: ^1000-SOMETHING MG^
     Route: 042
     Dates: start: 2003
  2. PREDNISONE [Suspect]
     Indication: LOWER RESPIRATORY TRACT INFLAMMATION
     Route: 048
     Dates: start: 2003
  3. PROLASTIN [Concomitant]
     Indication: ALPHA-1 ANTI-TRYPSIN DEFICIENCY
     Route: 065
     Dates: start: 1994, end: 2003

REACTIONS (5)
  - Weight decreased [Not Recovered/Not Resolved]
  - Weight increased [Recovering/Resolving]
  - Dyspnoea [Not Recovered/Not Resolved]
  - Quality of life decreased [Recovering/Resolving]
  - Dyspnoea [Not Recovered/Not Resolved]
